FAERS Safety Report 6130024-8 (Version None)
Quarter: 2009Q1

REPORT INFORMATION
  Report Type: 
  Country: None (occurrence: None)
  Receive Date: 20090324
  Receipt Date: 20090309
  Transmission Date: 20090719
  Serious: Yes (Hospitalization, Other)
  Sender: FDA-Public Use
  Company Number: FR-GENENTECH-274909

PATIENT
  Sex: Male

DRUGS (8)
  1. BEVACIZUMAB [Suspect]
     Indication: NEOPLASM MALIGNANT
     Dosage: 270 MG, Q21D
     Route: 042
     Dates: start: 20081211
  2. ACTINOMYCIN D [Suspect]
     Indication: NEOPLASM MALIGNANT
     Dosage: 1.8 MG, Q21D
     Route: 042
     Dates: start: 20081211
  3. DOXORUBICIN HCL [Suspect]
     Indication: NEOPLASM MALIGNANT
     Dosage: 3.8 MG, Q21D
     Dates: start: 20081211
  4. IFOSFAMIDE [Suspect]
     Indication: NEOPLASM MALIGNANT
     Dosage: 3.6 G, Q21D
     Route: 042
     Dates: start: 20081212
  5. VINCRISTINE [Suspect]
     Indication: NEOPLASM MALIGNANT
     Dosage: 1.8 MG, Q21D
     Route: 042
     Dates: start: 20081211
  6. TAZOCILLINE [Concomitant]
     Indication: DRUG USE FOR UNKNOWN INDICATION
     Dosage: 3 G, QD
     Dates: start: 20081211, end: 20081218
  7. TEICOPLANIN [Concomitant]
     Indication: DRUG USE FOR UNKNOWN INDICATION
     Dosage: 360 MG, QD
     Dates: start: 20081210, end: 20081218
  8. PARACETAMOL [Concomitant]
     Indication: DRUG USE FOR UNKNOWN INDICATION
     Dosage: 1 G, QD
     Dates: start: 20081212, end: 20081218

REACTIONS (1)
  - FEBRILE BONE MARROW APLASIA [None]
